FAERS Safety Report 10336680 (Version 2)
Quarter: 2014Q3

REPORT INFORMATION
  Report Type: Spontaneous
  Country: IT (occurrence: IT)
  Receive Date: 20140723
  Receipt Date: 20140730
  Transmission Date: 20150326
  Serious: Yes (Hospitalization)
  Sender: FDA-Public Use
  Company Number: IT-ABBVIE-14P-083-1262114-00

PATIENT
  Age: 60 Year
  Sex: Female

DRUGS (3)
  1. VALPROIC ACID. [Suspect]
     Active Substance: VALPROIC ACID
     Indication: CONVULSION
     Dosage: TIME TO ONSET: 3 DAYS
     Route: 042
     Dates: start: 20140616, end: 20140623
  2. LEVETIRACETAM. [Suspect]
     Active Substance: LEVETIRACETAM
     Indication: CONVULSION
     Dosage: TIME TO ONSET: 2 DAYS
     Route: 042
     Dates: start: 20140617, end: 20140624
  3. PHENOBARBITAL. [Suspect]
     Active Substance: PHENOBARBITAL
     Indication: CONVULSION
     Dosage: TIME TO ONSET: 10 DAYS
     Route: 048
     Dates: start: 20140609, end: 20140612

REACTIONS (1)
  - Dermatitis allergic [Recovering/Resolving]

NARRATIVE: CASE EVENT DATE: 20140619
